FAERS Safety Report 7791664-3 (Version None)
Quarter: 2011Q4

REPORT INFORMATION
  Report Type: 
  Country: None (occurrence: None)
  Receive Date: 20111003
  Receipt Date: 20110920
  Transmission Date: 20120403
  Serious: Yes (Hospitalization)
  Sender: FDA-Public Use
  Company Number: US-JNJFOC-20110908722

PATIENT
  Sex: Male

DRUGS (4)
  1. INFLIXIMAB, RECOMBINANT [Suspect]
     Indication: INFLAMMATORY BOWEL DISEASE
     Route: 042
     Dates: start: 20110615
  2. METRONIDAZOLE [Concomitant]
  3. CIPROFLOXACIN [Concomitant]
  4. INFLIXIMAB, RECOMBINANT [Suspect]
     Route: 042
     Dates: start: 20091125

REACTIONS (1)
  - ANAL ABSCESS [None]
